FAERS Safety Report 16170876 (Version 2)
Quarter: 2019Q2

REPORT INFORMATION
  Report Type: Spontaneous
  Country: US (occurrence: US)
  Receive Date: 20190408
  Receipt Date: 20190521
  Transmission Date: 20190711
  Serious: No
  Sender: FDA-Public Use
  Company Number: US-NEUROCRINE BIOSCIENCES INC.-2019NBI00803

PATIENT
  Age: 51 Year
  Sex: Female
  Weight: 79.45 kg

DRUGS (3)
  1. INGREZZA [Suspect]
     Active Substance: VALBENAZINE
     Route: 048
     Dates: start: 2019, end: 2019
  2. INGREZZA [Suspect]
     Active Substance: VALBENAZINE
     Route: 048
     Dates: start: 20190419
  3. INGREZZA [Suspect]
     Active Substance: VALBENAZINE
     Indication: TARDIVE DYSKINESIA
     Route: 048
     Dates: start: 2019, end: 2019

REACTIONS (4)
  - Urticaria [Not Recovered/Not Resolved]
  - Tardive dyskinesia [Unknown]
  - Joint swelling [Not Recovered/Not Resolved]
  - Therapeutic product effect incomplete [None]

NARRATIVE: CASE EVENT DATE: 2019
